FAERS Safety Report 4458092-X (Version None)
Quarter: 2004Q3

REPORT INFORMATION
  Report Type: 
  Country: None (occurrence: None)
  Receive Date: 20040923
  Receipt Date: 20040910
  Transmission Date: 20050211
  Serious: Yes (Hospitalization)
  Sender: FDA-Public Use
  Company Number: A-CH2004-07294

PATIENT
  Age: 39 Year
  Sex: Female
  Weight: 58 kg

DRUGS (13)
  1. BOSENTAN [Suspect]
     Indication: PULMONARY HYPERTENSION
     Dosage: 62.5 MG, QD, ORAL; 125 MG, QD, ORAL; 250 MG, QD, ORAL
     Route: 048
     Dates: start: 20021114, end: 20021120
  2. BOSENTAN [Suspect]
     Indication: PULMONARY HYPERTENSION
     Dosage: 62.5 MG, QD, ORAL; 125 MG, QD, ORAL; 250 MG, QD, ORAL
     Route: 048
     Dates: start: 20021121, end: 20021211
  3. BOSENTAN [Suspect]
     Indication: PULMONARY HYPERTENSION
     Dosage: 62.5 MG, QD, ORAL; 125 MG, QD, ORAL; 250 MG, QD, ORAL
     Route: 048
     Dates: start: 20021212
  4. PREDNISOLONE [Concomitant]
  5. DIPYRIDAMOLE [Concomitant]
  6. ENALAPRIL MALEATE [Concomitant]
  7. FAMOTIDINE [Concomitant]
  8. JUVELA NICOTINATE (TOCOPHERYL NICOTINATE) [Concomitant]
  9. NIFEDIPINE [Concomitant]
  10. MAG-LAX  (PARAFFIN, LIQUID, MAGNESIUM HYDROXIDE) [Concomitant]
  11. POVIDON-IODINE (POVIDONE-IODINE) [Concomitant]
  12. SODIUM PICOSULFATE (SODIUM PICOSULFATE) [Concomitant]
  13. ROCALTROL [Concomitant]

REACTIONS (11)
  - BLOOD CREATINE PHOSPHOKINASE INCREASED [None]
  - BLOOD LACTATE DEHYDROGENASE INCREASED [None]
  - BODY TEMPERATURE DECREASED [None]
  - CONDITION AGGRAVATED [None]
  - DISEASE PROGRESSION [None]
  - MALAISE [None]
  - PERICARDITIS [None]
  - PYREXIA [None]
  - RASH [None]
  - SJOGREN'S SYNDROME [None]
  - SYSTEMIC LUPUS ERYTHEMATOSUS [None]
